FAERS Safety Report 8119897-7 (Version None)
Quarter: 2012Q1

REPORT INFORMATION
  Report Type: 
  Country: None (occurrence: None)
  Receive Date: 20120207
  Receipt Date: 20120202
  Transmission Date: 20120608
  Serious: No
  Sender: FDA-Public Use
  Company Number: US-B.I. PHARMACEUTICALS,INC./RIDGEFIELD-2012-BP-02163BP

PATIENT
  Age: 40 Year

DRUGS (3)
  1. TRADJENTA [Suspect]
     Indication: TYPE 2 DIABETES MELLITUS
     Route: 048
     Dates: start: 20120131
  2. QUEMOTHERAPY [Concomitant]
  3. METFORMIN HCL [Concomitant]

REACTIONS (2)
  - NAUSEA [None]
  - PARAESTHESIA [None]
